FAERS Safety Report 24688747 (Version 2)
Quarter: 2024Q4

REPORT INFORMATION
  Report Type: Spontaneous
  Country: US (occurrence: US)
  Receive Date: 20241203
  Receipt Date: 20241211
  Transmission Date: 20250115
  Serious: Yes (Other)
  Sender: ABBVIE
  Company Number: US-ABBVIE-6024954

PATIENT
  Age: 37 Year

DRUGS (7)
  1. CREON [Suspect]
     Active Substance: PANCRELIPASE AMYLASE\PANCRELIPASE LIPASE\PANCRELIPASE PROTEASE
     Indication: Product used for unknown indication
     Route: 048
  2. LINZESS [Concomitant]
     Active Substance: LINACLOTIDE
     Indication: Irritable bowel syndrome
     Dosage: USUALLY DAILY BUT CAN VARY
     Route: 048
  3. ERYTHROMYCIN [Concomitant]
     Active Substance: ERYTHROMYCIN
     Indication: Irritable bowel syndrome
     Route: 065
  4. LUBIPROSTONE [Concomitant]
     Active Substance: LUBIPROSTONE
     Indication: Product used for unknown indication
     Dosage: 2 TO 3 TIMES OPEN CAPSULE PUT IN GEL
     Route: 061
  5. MIRALAX [Suspect]
     Active Substance: POLYETHYLENE GLYCOL 3350
     Indication: Product used for unknown indication
     Route: 065
  6. LEVOSULPIRIDE [Concomitant]
     Active Substance: LEVOSULPIRIDE
     Indication: Somatic symptom disorder
     Route: 065
  7. GIMOTI [Concomitant]
     Active Substance: METOCLOPRAMIDE HYDROCHLORIDE
     Indication: Product used for unknown indication
     Route: 065

REACTIONS (46)
  - Lyme disease [Unknown]
  - Nyctalgia [Unknown]
  - Temperature intolerance [Unknown]
  - Temperature intolerance [Unknown]
  - Dysphagia [Unknown]
  - Weight decreased [Unknown]
  - Depression [Unknown]
  - Intestinal pseudo-obstruction [Unknown]
  - Jaundice [Unknown]
  - Hepatitis [Unknown]
  - Anaemia vitamin B12 deficiency [Unknown]
  - Respiratory disorder [Unknown]
  - Pneumonia [Unknown]
  - Endometriosis [Unknown]
  - Drug hypersensitivity [Unknown]
  - Anxiety [Unknown]
  - Allergic gastroenteritis [Unknown]
  - Gastroenteritis [Unknown]
  - Ileus paralytic [Unknown]
  - Colitis [Unknown]
  - Colonic fistula [Unknown]
  - Allergic oedema [Unknown]
  - Thirst [Unknown]
  - Increased tendency to bruise [Unknown]
  - Dysphagia [Unknown]
  - Unevaluable event [Unknown]
  - Chills [Unknown]
  - Pyrexia [Unknown]
  - Dry mouth [Unknown]
  - Nasal congestion [Unknown]
  - Dyspnoea [Unknown]
  - Nausea [Unknown]
  - Odynophagia [Unknown]
  - Abdominal pain [Unknown]
  - Gastrointestinal toxicity [Unknown]
  - Rash [Unknown]
  - Nail disorder [Unknown]
  - Temperature intolerance [Unknown]
  - Dyschezia [Unknown]
  - Foot deformity [Unknown]
  - Arthralgia [Unknown]
  - Cholestasis [Unknown]
  - Constipation [Unknown]
  - Pruritus allergic [Unknown]
  - Odynophagia [Unknown]
  - Neurogenic bowel [Unknown]

NARRATIVE: CASE EVENT DATE: 20230101
